FAERS Safety Report 25044796 (Version 1)
Quarter: 2025Q1

REPORT INFORMATION
  Report Type: Spontaneous
  Country: SE (occurrence: SE)
  Receive Date: 20250306
  Receipt Date: 20250306
  Transmission Date: 20250409
  Serious: Yes (Other)
  Sender: SANDOZ
  Company Number: SE-SANDOZ-SDZ2025SE012828

PATIENT
  Sex: Female

DRUGS (1)
  1. HYRIMOZ [Suspect]
     Active Substance: ADALIMUMAB-ADAZ
     Indication: Rheumatoid arthritis
     Route: 065

REACTIONS (6)
  - Deafness [Unknown]
  - Unevaluable event [Unknown]
  - Ill-defined disorder [Unknown]
  - Hyperglycaemia [Unknown]
  - Blood pressure increased [Unknown]
  - Dermatitis psoriasiform [Unknown]
